FAERS Safety Report 8077837-3 (Version None)
Quarter: 2012Q1

REPORT INFORMATION
  Report Type: 
  Country: None (occurrence: None)
  Receive Date: 20120127
  Receipt Date: 20120120
  Transmission Date: 20120608
  Serious: Yes (Other)
  Sender: FDA-Public Use
  Company Number: GB-PFIZER INC-GB-WYE-G01593808

PATIENT
  Age: 68 Year
  Sex: Male
  Weight: 78 kg

DRUGS (12)
  1. WARFARIN [Concomitant]
     Dosage: UNK
     Route: 065
  2. ACIPIMOX [Suspect]
     Dosage: 250.0 MG, 2X/DAY
     Route: 065
  3. FUROSEMIDE [Suspect]
     Dosage: 80.0 MG, 2X/DAY
     Route: 065
  4. FUROSEMIDE [Suspect]
     Dosage: 120.0 MG, 2X/DAY
     Route: 065
  5. PERINDOPRIL ERBUMINE [Suspect]
     Dosage: 2.0 MG, 1X/DAY
     Route: 065
  6. AMIODARONE HCL [Suspect]
     Dosage: 200.0 MG, 1X/DAY
     Route: 065
  7. LANSOPRAZOLE [Suspect]
     Dosage: 30.0 MG, 1X/DAY
     Route: 065
  8. ASPIRIN [Suspect]
     Dosage: 75.0 MG, 1X/DAY
     Route: 065
  9. DIGOXIN [Suspect]
     Dosage: .125 MG, 1X/DAY
     Route: 065
  10. EZETIMIBE [Suspect]
     Dosage: 10.0 MG, 1X/DAY
     Route: 048
  11. FUROSEMIDE [Suspect]
     Dosage: 160 MG ONCE DAILY
  12. BISOPROLOL FUMARATE [Suspect]
     Dosage: 7.5 MG, 1X/DAY
     Route: 065

REACTIONS (15)
  - LEFT VENTRICULAR DYSFUNCTION [None]
  - FEELING ABNORMAL [None]
  - DYSPNOEA [None]
  - DRUG INEFFECTIVE [None]
  - VENTRICULAR TACHYCARDIA [None]
  - CARDIAC MURMUR [None]
  - VENOUS PRESSURE JUGULAR INCREASED [None]
  - FATIGUE [None]
  - OEDEMA [None]
  - ATRIAL FIBRILLATION [None]
  - OEDEMA PERIPHERAL [None]
  - DYSPNOEA EXERTIONAL [None]
  - DISSOCIATION [None]
  - DIZZINESS [None]
  - PARAESTHESIA [None]
